FAERS Safety Report 20390914 (Version 1)
Quarter: 2022Q1

REPORT INFORMATION
  Report Type: Report from Study
  Country: US (occurrence: US)
  Receive Date: 20220128
  Receipt Date: 20220128
  Transmission Date: 20220423
  Serious: Yes (Other)
  Sender: FDA-Public Use
  Company Number: US-MYLANLABS-2022M1007456

PATIENT
  Age: 22 Year
  Sex: Female

DRUGS (3)
  1. LEVETIRACETAM [Suspect]
     Active Substance: LEVETIRACETAM
     Indication: Seizure
     Dosage: UNK
     Route: 042
  2. FENTANYL [Concomitant]
     Active Substance: FENTANYL
     Indication: Seizure
     Dosage: UNK
     Route: 042
  3. PROPOFOL [Concomitant]
     Active Substance: PROPOFOL
     Indication: Seizure
     Dosage: UNK
     Route: 042

REACTIONS (3)
  - Injection site reaction [Unknown]
  - Deep vein thrombosis [Unknown]
  - Superficial vein thrombosis [Unknown]
